FAERS Safety Report 13190367 (Version 1)
Quarter: 2017Q1

REPORT INFORMATION
  Report Type: Spontaneous
  Country: US (occurrence: US)
  Receive Date: 20170206
  Receipt Date: 20170206
  Transmission Date: 20170428
  Serious: Yes (Other)
  Sender: FDA-Public Use
  Company Number: US-009507513-1702USA001732

PATIENT
  Age: 50 Year
  Sex: Male

DRUGS (4)
  1. DIOVAN [Concomitant]
     Active Substance: VALSARTAN
  2. ALBUTEROL. [Concomitant]
     Active Substance: ALBUTEROL
  3. DULERA [Suspect]
     Active Substance: FORMOTEROL FUMARATE DIHYDRATE\MOMETASONE FUROATE
     Indication: CHRONIC OBSTRUCTIVE PULMONARY DISEASE
     Dosage: UNK
     Route: 055
     Dates: start: 2014, end: 20170119
  4. CLONAZEPAM. [Concomitant]
     Active Substance: CLONAZEPAM

REACTIONS (12)
  - Chest pain [Unknown]
  - Heart injury [Unknown]
  - Amblyopia [Recovering/Resolving]
  - Sleep disorder [Unknown]
  - Oropharyngeal pain [Unknown]
  - Gingival pain [Unknown]
  - Benign neoplasm [Recovered/Resolved]
  - Coating in mouth [Unknown]
  - Gingival discolouration [Unknown]
  - Gingival recession [Unknown]
  - Visual impairment [Unknown]
  - Oral disorder [Not Recovered/Not Resolved]

NARRATIVE: CASE EVENT DATE: 2016
